FAERS Safety Report 24025171 (Version 1)
Quarter: 2024Q2

REPORT INFORMATION
  Report Type: Report from Study
  Country: US (occurrence: US)
  Receive Date: 20240628
  Receipt Date: 20240628
  Transmission Date: 20240716
  Serious: Yes (Death, Other)
  Sender: FDA-Public Use
  Company Number: US-ABBVIE-5817750

PATIENT
  Age: 76 Year
  Sex: Male
  Weight: 62 kg

DRUGS (2)
  1. IMBRUVICA [Suspect]
     Active Substance: IBRUTINIB
     Indication: Leukaemia
     Dosage: FORM STRENGTH: 420 MG
     Route: 048
     Dates: end: 20240612
  2. IMBRUVICA [Suspect]
     Active Substance: IBRUTINIB
     Indication: Leukaemia
     Dosage: FORM STRENGTH: 140 MG
     Route: 048

REACTIONS (6)
  - Sudden death [Fatal]
  - Dizziness [Fatal]
  - Diabetes mellitus [Fatal]
  - Headache [Fatal]
  - Cerebrovascular accident [Fatal]
  - Cerebral haemorrhage [Fatal]

NARRATIVE: CASE EVENT DATE: 20240612
